FAERS Safety Report 5359222-8 (Version None)
Quarter: 2007Q2

REPORT INFORMATION
  Report Type: 
  Country: None (occurrence: None)
  Receive Date: 20070615
  Receipt Date: 20070612
  Transmission Date: 20071010
  Serious: Yes (Life-Threatening, Hospitalization)
  Sender: FDA-Public Use
  Company Number: DE-ASTRAZENECA-2007PK01135

PATIENT
  Age: 30037 Day
  Sex: Male
  Weight: 74 kg

DRUGS (3)
  1. NEXIUM [Suspect]
     Indication: REFLUX OESOPHAGITIS
     Route: 048
  2. METOPROLOL SUCCINATE [Suspect]
     Indication: HYPERTENSION
     Route: 048
  3. JURNISTA [Suspect]
     Indication: PAIN
     Route: 048
     Dates: start: 20070602

REACTIONS (3)
  - DEPRESSED LEVEL OF CONSCIOUSNESS [None]
  - QUADRIPLEGIA [None]
  - RESPIRATORY FAILURE [None]
